FAERS Safety Report 22020711 (Version 1)
Quarter: 2023Q1

REPORT INFORMATION
  Report Type: Spontaneous
  Country: US (occurrence: None)
  Receive Date: 20230217
  Receipt Date: 20230217
  Transmission Date: 20230418
  Serious: No
  Sender: FDA-Public Use
  Company Number: None

PATIENT
  Age: 69 Year
  Sex: Female
  Weight: 103 kg

DRUGS (2)
  1. FULVESTRANT [Suspect]
     Active Substance: FULVESTRANT
     Indication: Breast cancer
     Dosage: OTHER FREQUENCY : MONTHLY;?
     Route: 030
     Dates: start: 20221120
  2. XGEVA [Concomitant]
     Active Substance: DENOSUMAB
     Dates: start: 20200818

REACTIONS (4)
  - Cough [None]
  - Injection related reaction [None]
  - Sensation of foreign body [None]
  - Product quality issue [None]

NARRATIVE: CASE EVENT DATE: 20230217
